FAERS Safety Report 7545448-1 (Version None)
Quarter: 2011Q2

REPORT INFORMATION
  Report Type: 
  Country: None (occurrence: None)
  Receive Date: 20110613
  Receipt Date: 20110613
  Transmission Date: 20111010
  Serious: Yes (Hospitalization)
  Sender: FDA-Public Use
  Company Number: None

PATIENT
  Sex: Female
  Weight: 55.8 kg

DRUGS (8)
  1. PROTONIX [Concomitant]
  2. CISPLATIN [Suspect]
     Dosage: 40 MG
     Dates: end: 20110524
  3. DILAUDID [Concomitant]
  4. LEXAPRO [Concomitant]
  5. VALIUM [Concomitant]
  6. CYMBALTA [Concomitant]
  7. ZOFRAN [Concomitant]
  8. TAXOL [Suspect]
     Dosage: 80 MG
     Dates: end: 20110524

REACTIONS (3)
  - DIARRHOEA [None]
  - NAUSEA [None]
  - DEHYDRATION [None]
